FAERS Safety Report 8332303-2 (Version None)
Quarter: 2012Q2

REPORT INFORMATION
  Report Type: 
  Country: None (occurrence: None)
  Receive Date: 20120503
  Receipt Date: 20120423
  Transmission Date: 20120825
  Serious: No
  Sender: FDA-Public Use
  Company Number: US-BIOGENIDEC-2012BI014137

PATIENT
  Sex: Female

DRUGS (5)
  1. AVONEX [Suspect]
     Route: 030
  2. AVONEX [Suspect]
     Route: 030
     Dates: start: 20120210
  3. AVONEX [Suspect]
     Indication: MULTIPLE SCLEROSIS
     Route: 030
  4. AVONEX [Suspect]
     Route: 030
     Dates: start: 20100813, end: 20110509
  5. ADDERALL 5 [Concomitant]

REACTIONS (2)
  - FATIGUE [None]
  - BALANCE DISORDER [None]
